FAERS Safety Report 7728192-7 (Version None)
Quarter: 2011Q3

REPORT INFORMATION
  Report Type: 
  Country: None (occurrence: None)
  Receive Date: 20110905
  Receipt Date: 20110823
  Transmission Date: 20111222
  Serious: Yes (Other)
  Sender: FDA-Public Use
  Company Number: PHHY2011US47776

PATIENT
  Sex: Female
  Weight: 78.458 kg

DRUGS (4)
  1. LOPID [Concomitant]
     Dosage: 600 MG, BID
  2. RECLAST [Suspect]
     Dosage: 5 MG/100ML
     Route: 042
     Dates: start: 20100802
  3. MULTIVITAMIN [Concomitant]
     Dosage: UNK UKN, UNK
  4. STATINS [Concomitant]
     Dosage: UNK UL, UNK

REACTIONS (26)
  - FALL [None]
  - PATELLA FRACTURE [None]
  - OEDEMA PERIPHERAL [None]
  - SWELLING [None]
  - MUSCULOSKELETAL PAIN [None]
  - MUSCLE SPASMS [None]
  - BONE PAIN [None]
  - SLEEP APNOEA SYNDROME [None]
  - ECCHYMOSIS [None]
  - JOINT INJURY [None]
  - PELVIC PAIN [None]
  - JOINT EFFUSION [None]
  - MYALGIA [None]
  - JOINT DISLOCATION [None]
  - MYOSITIS [None]
  - INTERVERTEBRAL DISC DISORDER [None]
  - PAIN IN EXTREMITY [None]
  - PAIN [None]
  - MENISCUS LESION [None]
  - INTERVERTEBRAL DISC DEGENERATION [None]
  - MUSCLE INJURY [None]
  - MOVEMENT DISORDER [None]
  - PALPITATIONS [None]
  - BACK PAIN [None]
  - GRANULOMA [None]
  - ARTHRALGIA [None]
